FAERS Safety Report 25120825 (Version 1)
Quarter: 2025Q1

REPORT INFORMATION
  Report Type: Report from Study
  Country: ES (occurrence: ES)
  Receive Date: 20250325
  Receipt Date: 20250325
  Transmission Date: 20250409
  Serious: Yes (Death)
  Sender: ABBVIE
  Company Number: ES-JNJFOC-20250351683

PATIENT

DRUGS (1)
  1. IMBRUVICA [Suspect]
     Active Substance: IBRUTINIB
     Indication: Chronic lymphocytic leukaemia
     Route: 048

REACTIONS (8)
  - Arthralgia [Fatal]
  - Chronic lymphocytic leukaemia [Fatal]
  - Hepatotoxicity [Fatal]
  - Gastrointestinal disorder [Fatal]
  - Skin reaction [Fatal]
  - Toxicity to various agents [Fatal]
  - Blood disorder [Fatal]
  - Nervous system disorder [Fatal]
